FAERS Safety Report 6100443-4 (Version None)
Quarter: 2009Q1

REPORT INFORMATION
  Report Type: 
  Country: None (occurrence: None)
  Receive Date: 20090227
  Receipt Date: 20090227
  Transmission Date: 20090719
  Serious: No
  Sender: FDA-Public Use
  Company Number: None

PATIENT
  Age: 35 Year
  Sex: Male
  Weight: 81.6475 kg

DRUGS (2)
  1. ZOLPIDEM [Suspect]
     Indication: INSOMNIA
     Dosage: 1 NIGHT AS NEEDED PO
     Route: 048
     Dates: start: 20030101
  2. ZOLPIDEM [Suspect]
     Indication: SLEEP DISORDER
     Dosage: 1 NIGHT AS NEEDED PO
     Route: 048
     Dates: start: 20030101

REACTIONS (3)
  - DRUG EFFECT DECREASED [None]
  - POOR QUALITY DRUG ADMINISTERED [None]
  - PRODUCT QUALITY ISSUE [None]
